FAERS Safety Report 11197567 (Version 1)
Quarter: 2015Q2

REPORT INFORMATION
  Report Type: Spontaneous
  Country: US (occurrence: US)
  Receive Date: 20150617
  Receipt Date: 20150617
  Transmission Date: 20150821
  Serious: No
  Sender: FDA-Public Use
  Company Number: US-BAYER-2015-353571

PATIENT
  Age: 74 Year
  Sex: Female
  Weight: 67 kg

DRUGS (2)
  1. CLARITIN [Suspect]
     Active Substance: LORATADINE
     Dosage: UNK
     Route: 048
     Dates: start: 20150606, end: 20150612
  2. FISH OIL [Concomitant]
     Active Substance: FISH OIL

REACTIONS (4)
  - Chromaturia [Recovered/Resolved]
  - Pollakiuria [Recovered/Resolved]
  - Dizziness [Recovered/Resolved]
  - Hypoaesthesia [Recovered/Resolved]

NARRATIVE: CASE EVENT DATE: 20150606
